FAERS Safety Report 6714058-8 (Version None)
Quarter: 2010Q2

REPORT INFORMATION
  Report Type: 
  Country: None (occurrence: None)
  Receive Date: 20100504
  Receipt Date: 20100421
  Transmission Date: 20101027
  Serious: Yes (Hospitalization)
  Sender: FDA-Public Use
  Company Number: 2010BM000067

PATIENT
  Age: 14 Year
  Sex: Female
  Weight: 28 kg

DRUGS (4)
  1. NAGLAZYME [Suspect]
     Indication: MUCOPOLYSACCHARIDOSIS VI
     Dosage: 4 VIALS;QW;IVDRP
     Route: 042
     Dates: start: 20090219
  2. DIGOXIN (CON.) [Concomitant]
  3. FUROSEMIDE (CON.0 [Concomitant]
  4. CAPTOPRIL (CON.) [Concomitant]

REACTIONS (2)
  - MITRAL VALVE INCOMPETENCE [None]
  - RESPIRATORY DISORDER [None]
